FAERS Safety Report 23070228 (Version 1)
Quarter: 2023Q4

REPORT INFORMATION
  Report Type: Spontaneous
  Country: FR (occurrence: FR)
  Receive Date: 20231016
  Receipt Date: 20231016
  Transmission Date: 20240109
  Serious: Yes (Hospitalization, Other)
  Sender: FDA-Public Use
  Company Number: None

PATIENT
  Age: 18 Year
  Sex: Female
  Weight: 60 kg

DRUGS (2)
  1. ACETAMINOPHEN [Suspect]
     Active Substance: ACETAMINOPHEN
     Indication: Product used for unknown indication
     Dosage: 44 MG, 1 TOTAL, 44 TABS OF 1 G ON 22-SEP-2023
     Route: 048
     Dates: start: 20230922, end: 20230922
  2. OXAZEPAM [Suspect]
     Active Substance: OXAZEPAM
     Indication: Product used for unknown indication
     Dosage: 50MG, 1 TOTAL, 5 TAB IN A SINGLE DOSE ON 22-SEP-23
     Route: 048
     Dates: start: 20230922, end: 20230922

REACTIONS (3)
  - Poisoning deliberate [Unknown]
  - Toxicity to various agents [Recovered/Resolved]
  - Vomiting [Recovered/Resolved]

NARRATIVE: CASE EVENT DATE: 20230922
